FAERS Safety Report 9539623 (Version 1)
Quarter: 2013Q3

REPORT INFORMATION
  Report Type: Spontaneous
  Country: BR (occurrence: BR)
  Receive Date: 20130920
  Receipt Date: 20130920
  Transmission Date: 20140515
  Serious: Yes (Other)
  Sender: FDA-Public Use
  Company Number: BR-PFIZER INC-2013270760

PATIENT
  Sex: Female

DRUGS (1)
  1. FRONTAL XR [Suspect]
     Dosage: UNK, 4X/DAY

REACTIONS (3)
  - Diabetes mellitus [Unknown]
  - Depression [Unknown]
  - Blood pressure abnormal [Unknown]
